FAERS Safety Report 17545276 (Version 1)
Quarter: 2020Q1

REPORT INFORMATION
  Report Type: Spontaneous
  Country: PL (occurrence: PL)
  Receive Date: 20200316
  Receipt Date: 20200316
  Transmission Date: 20200409
  Serious: Yes (Hospitalization, Other)
  Sender: FDA-Public Use
  Company Number: PL-MYLANLABS-2020M1026431

PATIENT
  Age: 37 Year
  Sex: Female

DRUGS (28)
  1. TORASEMIDE [Suspect]
     Active Substance: TORSEMIDE
     Dosage: 2.5 UNK
     Route: 065
  2. EPOETIN BETA [Suspect]
     Active Substance: ERYTHROPOIETIN
     Indication: PRODUCT USED FOR UNKNOWN INDICATION
     Dosage: 4000 INTERNATIONAL UNIT, QW, (1/WEEK, AFTER EACH DIALYSIS)
     Route: 058
     Dates: start: 201508
  3. ASCORBIC ACID. [Concomitant]
     Active Substance: ASCORBIC ACID
     Dosage: UNK
     Route: 065
  4. EPOETIN BETA [Suspect]
     Active Substance: ERYTHROPOIETIN
     Dosage: UNK, (1/WEEK, AFTER EACH DIALYSIS)
     Route: 058
  5. FOLIC ACID. [Concomitant]
     Active Substance: FOLIC ACID
     Dosage: 15 MILLIGRAM, QD
     Route: 048
     Dates: start: 201503
  6. CEFUROXIME. [Suspect]
     Active Substance: CEFUROXIME
     Indication: CYSTITIS
     Dosage: UNK
     Route: 065
     Dates: start: 201505
  7. ACETYLSALICYLIC ACID [Suspect]
     Active Substance: ASPIRIN
     Indication: PROPHYLAXIS
     Dosage: 75 MILLIGRAM
     Route: 048
     Dates: start: 201503
  8. IRON [Suspect]
     Active Substance: IRON
     Indication: PRODUCT USED FOR UNKNOWN INDICATION
     Dosage: 100 MILLIGRAM
     Route: 048
     Dates: start: 201408
  9. LEVOTHYROXINE. [Suspect]
     Active Substance: LEVOTHYROXINE
     Dosage: 25 MICROGRAM
     Route: 065
     Dates: start: 201505
  10. SPIRAMYCIN [Suspect]
     Active Substance: SPIRAMYCIN
     Dosage: UNK
     Route: 065
  11. COLECALCIFEROL [Concomitant]
     Active Substance: CHOLECALCIFEROL
     Dosage: UNK
     Route: 065
  12. ALFACALCIDOL [Concomitant]
     Active Substance: ALFACALCIDOL
     Indication: HYPERPARATHYROIDISM
     Dosage: 0.25 MICROGRAM, QD
     Route: 065
  13. IRON [Suspect]
     Active Substance: IRON
     Dosage: UNK
     Route: 048
  14. EPOETIN BETA [Suspect]
     Active Substance: ERYTHROPOIETIN
     Dosage: 2000 INTERNATIONAL UNIT, QW, (1/WEEK, AFTER EACH DIALYSIS)
     Route: 058
  15. ASCORBIC ACID. [Concomitant]
     Active Substance: ASCORBIC ACID
     Indication: PRODUCT USED FOR UNKNOWN INDICATION
     Dosage: UNK
     Route: 065
     Dates: start: 201503
  16. TORASEMIDE [Suspect]
     Active Substance: TORSEMIDE
     Indication: HYPERTENSION
     Dosage: 2.5 MILLIGRAM, QD
     Route: 065
  17. EPOETIN BETA [Suspect]
     Active Substance: ERYTHROPOIETIN
     Dosage: 2000 INTERNATIONAL UNIT, QW, (1/WEEK, AFTER EACH DIALYSIS)
     Route: 058
  18. EPOETIN BETA [Suspect]
     Active Substance: ERYTHROPOIETIN
     Dosage: UNK
     Route: 065
  19. ACETYLSALICYLIC ACID [Suspect]
     Active Substance: ASPIRIN
     Dosage: 15 MILLIGRAM, QD
     Route: 048
  20. RISEDRONIC ACID [Concomitant]
     Active Substance: RISEDRONIC ACID
     Dosage: UNK
     Route: 065
  21. SIMVASTATIN. [Suspect]
     Active Substance: SIMVASTATIN
     Indication: HYPERCHOLESTEROLAEMIA
     Dosage: 20 MILLIGRAM
     Route: 065
  22. IRON [Suspect]
     Active Substance: IRON
     Dosage: UNK
     Route: 048
     Dates: start: 201403
  23. METYLDOPA [Suspect]
     Active Substance: METHYLDOPA
     Indication: HYPERTENSION
     Dosage: UNK
     Route: 065
     Dates: start: 201505
  24. HEPARIN [Concomitant]
     Active Substance: HEPARIN SODIUM
     Indication: ANTICOAGULANT THERAPY
  25. LEVOTHYROXINE. [Suspect]
     Active Substance: LEVOTHYROXINE
     Indication: HYPOTHYROIDISM
     Dosage: 25 MICROGRAM, QD
     Route: 065
  26. SPIRAMYCIN [Suspect]
     Active Substance: SPIRAMYCIN
     Indication: TOXOPLASMOSIS
     Dosage: UNK
     Route: 065
     Dates: start: 201505
  27. METYLDOPA [Suspect]
     Active Substance: METHYLDOPA
     Dosage: 3 DOSAGE FORM, QD, (1 DF, TID)
     Route: 065
  28. FOLIC ACID. [Concomitant]
     Active Substance: FOLIC ACID
     Indication: PRODUCT USED FOR UNKNOWN INDICATION
     Dosage: 15 MILLIGRAM, QD
     Route: 048

REACTIONS (12)
  - Premature delivery [Unknown]
  - Haemoglobin decreased [Unknown]
  - Maternal exposure during pregnancy [Recovered/Resolved]
  - Live birth [Recovered/Resolved]
  - Premature rupture of membranes [Unknown]
  - Blood albumin decreased [Unknown]
  - Haematocrit decreased [Unknown]
  - Cystitis [Unknown]
  - Contraindicated product administered [Unknown]
  - Oedema peripheral [Unknown]
  - Toxoplasmosis [Unknown]
  - Hypothyroidism [Unknown]

NARRATIVE: CASE EVENT DATE: 201505
